FAERS Safety Report 25659285 (Version 1)
Quarter: 2025Q3

REPORT INFORMATION
  Report Type: Spontaneous
  Country: GB (occurrence: GB)
  Receive Date: 20250808
  Receipt Date: 20250808
  Transmission Date: 20251020
  Serious: Yes (Hospitalization)
  Sender: MYLAN
  Company Number: GB-MYLANLABS-2025M1054917

PATIENT
  Sex: Female

DRUGS (6)
  1. CLOZARIL [Suspect]
     Active Substance: CLOZAPINE
     Indication: Depression
  2. CLOZARIL [Suspect]
     Active Substance: CLOZAPINE
     Indication: Psychotic symptom
  3. CLOZARIL [Suspect]
     Active Substance: CLOZAPINE
     Indication: Self-destructive behaviour
  4. CLOZARIL [Suspect]
     Active Substance: CLOZAPINE
     Indication: Suicide attempt
  5. CLOZARIL [Suspect]
     Active Substance: CLOZAPINE
     Indication: Hallucination, auditory
  6. CLOZARIL [Suspect]
     Active Substance: CLOZAPINE
     Indication: Schizophrenia

REACTIONS (2)
  - Hospitalisation [Unknown]
  - Off label use [Unknown]
